FAERS Safety Report 8564540-6 (Version None)
Quarter: 2012Q3

REPORT INFORMATION
  Report Type: 
  Country: None (occurrence: None)
  Receive Date: 20120803
  Receipt Date: 20120725
  Transmission Date: 20120928
  Serious: Yes (Other)
  Sender: FDA-Public Use
  Company Number: JP-009507513-2012SP020573

PATIENT

DRUGS (14)
  1. PEG-INTRON [Suspect]
     Indication: HEPATITIS C
     Dosage: 1.5 ?G/KG, QW
     Route: 058
  2. LIVALO [Concomitant]
     Indication: HYPERLIPIDAEMIA
     Dosage: FORMULATION POR
     Route: 048
  3. EPADEL [Concomitant]
     Indication: HYPERLIPIDAEMIA
     Dosage: 1800 MG, QD
     Route: 048
  4. ETIZOLAM [Concomitant]
     Route: 048
  5. REBETOL [Suspect]
     Indication: HEPATITIS C
     Dosage: 1000 MG, QD
     Route: 048
  6. PEG-INTRON [Suspect]
     Dosage: 1.5MCG/KG/WEEK
     Route: 051
     Dates: end: 20120613
  7. LIVALO [Concomitant]
     Route: 048
  8. REBETOL [Suspect]
     Route: 048
     Dates: end: 20120613
  9. CLARITIN REDITABS [Concomitant]
     Indication: PROPHYLAXIS
     Dosage: 10 MG, QD
     Route: 048
  10. TELAVIC [Suspect]
     Indication: HEPATITIS C
     Route: 048
     Dates: start: 20120104
  11. EPADEL S [Concomitant]
     Indication: HYPERLIPIDAEMIA
     Route: 048
  12. ANTIVIRAL (UNSPECIFIED) [Suspect]
     Indication: HEPATITIS C
     Dosage: 2250 MG, QD
     Route: 048
     Dates: start: 20120104
  13. CLARITIN REDITABS [Concomitant]
     Route: 048
  14. ETIZOLAM [Concomitant]
     Indication: INSOMNIA
     Dosage: FORMULATION POR
     Route: 048

REACTIONS (1)
  - ANAEMIA [None]
